FAERS Safety Report 4386615-8 (Version None)
Quarter: 2004Q2

REPORT INFORMATION
  Report Type: 
  Country: None (occurrence: None)
  Receive Date: 20040629
  Receipt Date: 20040617
  Transmission Date: 20050107
  Serious: Yes (Other)
  Sender: FDA-Public Use
  Company Number: GB-GLAXOSMITHKLINE-B0336127A

PATIENT
  Age: 55 Year
  Sex: Female

DRUGS (7)
  1. IMIGRAN [Suspect]
     Indication: MIGRAINE
     Dosage: 100MG PER DAY
     Route: 048
     Dates: start: 20010101
  2. TELMISARTAN [Concomitant]
     Dosage: 80MG PER DAY
     Route: 048
  3. FLUOXETINE [Concomitant]
     Route: 065
  4. CLARITHROMYCIN [Concomitant]
     Dosage: 500MG PER DAY
     Route: 048
  5. FLUCONAZOLE [Concomitant]
     Dosage: 150MG PER DAY
     Route: 048
  6. DESLORATADINE [Concomitant]
     Dosage: 5MG PER DAY
     Route: 048
  7. CYCLOPENTHIAZIDE [Concomitant]
     Dosage: 500MCG PER DAY
     Route: 048

REACTIONS (3)
  - BLADDER SPASM [None]
  - DYSURIA [None]
  - PAIN [None]
